FAERS Safety Report 9316686 (Version 1)
Quarter: 2013Q2

REPORT INFORMATION
  Report Type: Report from Study
  Country: FR (occurrence: FR)
  Receive Date: 20130530
  Receipt Date: 20130530
  Transmission Date: 20140414
  Serious: Yes (Hospitalization)
  Sender: FDA-Public Use
  Company Number: FR-ROCHE-649206

PATIENT
  Age: 85 Year
  Sex: Male
  Weight: 71 kg

DRUGS (3)
  1. RITUXIMAB [Suspect]
     Indication: NON-HODGKIN^S LYMPHOMA
     Route: 042
  2. VINCRISTINE [Suspect]
     Indication: NON-HODGKIN^S LYMPHOMA
     Route: 065
  3. CASODEX [Concomitant]
     Route: 048

REACTIONS (3)
  - Gout [Not Recovered/Not Resolved]
  - Ileus paralytic [Recovered/Resolved]
  - Pyrexia [Not Recovered/Not Resolved]
